FAERS Safety Report 4921985-0 (Version None)
Quarter: 2006Q1

REPORT INFORMATION
  Report Type: 
  Country: None (occurrence: None)
  Receive Date: 20060223
  Receipt Date: 20060223
  Transmission Date: 20060701
  Serious: Yes (Hospitalization)
  Sender: FDA-Public Use
  Company Number: None

PATIENT
  Age: 87 Year
  Sex: Male

DRUGS (8)
  1. COUMADIN [Suspect]
     Indication: ATRIAL FIBRILLATION
     Dosage: 4 MG ALT W/ 3 MG
  2. LASIX [Concomitant]
  3. LISINOPRIL [Concomitant]
  4. HYTRIN [Concomitant]
  5. ASPIRIN [Concomitant]
  6. NEURONTIN [Concomitant]
  7. AMIODARONE [Concomitant]
  8. PAMELOR [Concomitant]

REACTIONS (1)
  - GASTROINTESTINAL HAEMORRHAGE [None]
